FAERS Safety Report 9336460 (Version 1)
Quarter: 2013Q2

REPORT INFORMATION
  Report Type: Spontaneous
  Country: CO (occurrence: CO)
  Receive Date: 20130607
  Receipt Date: 20130607
  Transmission Date: 20140414
  Serious: Yes (Death, Hospitalization)
  Sender: FDA-Public Use
  Company Number: CO-GENZYME-FABR-1003309

PATIENT
  Age: 62 Year
  Sex: Male

DRUGS (1)
  1. FABRAZYME [Suspect]
     Indication: FABRY^S DISEASE
     Dosage: 75 MG, Q2W
     Route: 042
     Dates: start: 20051001

REACTIONS (1)
  - Pancreatitis [Fatal]
